FAERS Safety Report 18744216 (Version 3)
Quarter: 2021Q3

REPORT INFORMATION
  Report Type: Report from Study
  Country: US (occurrence: US)
  Receive Date: 20210114
  Receipt Date: 20210805
  Transmission Date: 20211014
  Serious: Yes (Death, Hospitalization, Other)
  Sender: FDA-Public Use
  Company Number: US-GILEAD-2021-0513003

PATIENT
  Age: 79 Year
  Sex: Female

DRUGS (1)
  1. IDELALISIB [Suspect]
     Active Substance: IDELALISIB
     Indication: CHRONIC LYMPHOCYTIC LEUKAEMIA
     Dosage: 150 MG, BID
     Route: 048
     Dates: start: 20190925

REACTIONS (2)
  - Respiratory failure [Fatal]
  - Performance status decreased [Not Recovered/Not Resolved]

NARRATIVE: CASE EVENT DATE: 20210110
